FAERS Safety Report 18378722 (Version 1)
Quarter: 2020Q4

REPORT INFORMATION
  Report Type: Spontaneous
  Country: US (occurrence: US)
  Receive Date: 20201013
  Receipt Date: 20201013
  Transmission Date: 20210114
  Serious: No
  Sender: FDA-Public Use
  Company Number: US-GE HEALTHCARE LIFE SCIENCES-2020CSU002619

PATIENT
  Age: 19 Year
  Sex: Male

DRUGS (2)
  1. OMNIPAQUE [Suspect]
     Active Substance: IOHEXOL
     Indication: COMPUTERISED TOMOGRAM THORAX
     Dosage: UNKNOWN DOSE AT A RATE OF 4.0, SINGLE
     Route: 042
     Dates: start: 20200615, end: 20200615
  2. OMNIPAQUE [Suspect]
     Active Substance: IOHEXOL
     Indication: COUGH

REACTIONS (1)
  - Extravasation [Unknown]

NARRATIVE: CASE EVENT DATE: 20200615
